FAERS Safety Report 14818065 (Version 1)
Quarter: 2018Q2

REPORT INFORMATION
  Report Type: Spontaneous
  Country: FR (occurrence: FR)
  Receive Date: 20180427
  Receipt Date: 20180427
  Transmission Date: 20180711
  Serious: Yes (Death, Congenital Anomaly)
  Sender: FDA-Public Use
  Company Number: FR-009507513-1804FRA009227

PATIENT
  Sex: Male
  Weight: .82 kg

DRUGS (1)
  1. TEMODAL [Suspect]
     Active Substance: TEMOZOLOMIDE
     Indication: GLIOBLASTOMA
     Dosage: 1450 MG, QM
     Route: 064
     Dates: start: 20170908, end: 20180215

REACTIONS (4)
  - Selective abortion [Fatal]
  - Foetal growth restriction [Fatal]
  - Congenital anomaly [Fatal]
  - Amniotic fluid index decreased [Fatal]

NARRATIVE: CASE EVENT DATE: 20180309
